FAERS Safety Report 6638903-X (Version None)
Quarter: 2010Q1

REPORT INFORMATION
  Report Type: 
  Country: None (occurrence: None)
  Receive Date: 20100317
  Receipt Date: 20100303
  Transmission Date: 20100710
  Serious: Yes (Other)
  Sender: FDA-Public Use
  Company Number: PHHY2010US13110

PATIENT
  Age: 69 Year
  Sex: Female

DRUGS (4)
  1. RECLAST [Suspect]
     Indication: OSTEOPOROSIS
     Dosage: 5 MG/YEAR
     Route: 042
     Dates: start: 20091216
  2. METHOTREXATE [Concomitant]
     Dosage: 12.5 MG/ WEEKLY
  3. CELEBREX [Concomitant]
     Dosage: 200 MG, BID
  4. FOLIC ACID [Concomitant]
     Dosage: 1 MG, QD

REACTIONS (1)
  - HERPES ZOSTER [None]
